FAERS Safety Report 9432772 (Version 2)
Quarter: 2014Q1

REPORT INFORMATION
  Report Type: Spontaneous
  Country: US (occurrence: US)
  Receive Date: 20130731
  Receipt Date: 20140328
  Transmission Date: 20141002
  Serious: No
  Sender: FDA-Public Use
  Company Number: US-009507513-1307USA017034

PATIENT
  Sex: Female
  Weight: 94.33 kg

DRUGS (3)
  1. NUVARING [Suspect]
     Indication: CONTRACEPTION
     Dosage: UNK
     Route: 067
     Dates: start: 200707, end: 20071019
  2. NUVARING [Suspect]
     Indication: MENORRHAGIA
  3. BENICAR [Concomitant]
     Indication: HYPERTENSION
     Dosage: UNK
     Dates: start: 1995

REACTIONS (4)
  - Deep vein thrombosis [Unknown]
  - Coagulopathy [Unknown]
  - Hysterectomy [Unknown]
  - Off label use [Unknown]
